FAERS Safety Report 8976254 (Version 1)
Quarter: 2012Q4

REPORT INFORMATION
  Report Type: 
  Country: CL (occurrence: CL)
  Receive Date: 20121220
  Receipt Date: 20121220
  Transmission Date: 20130627
  Serious: Yes (Other)
  Sender: FDA-Public Use
  Company Number: CL-PFIZER INC-2012297193

PATIENT
  Age: 61 Year
  Sex: Female

DRUGS (2)
  1. CARDURA [Suspect]
     Indication: HYPERTENSION
     Dosage: 4 mg
     Route: 048
     Dates: start: 2007, end: 20121123
  2. ATENOLOL [Concomitant]
     Dosage: UNK
     Dates: start: 2007

REACTIONS (4)
  - Epistaxis [Unknown]
  - Dizziness [Unknown]
  - Hallucination, visual [Unknown]
  - Blood pressure increased [Unknown]
